FAERS Safety Report 10169173 (Version 1)
Quarter: 2014Q2

REPORT INFORMATION
  Report Type: Spontaneous
  Country: US (occurrence: US)
  Receive Date: 20140513
  Receipt Date: 20140513
  Transmission Date: 20141212
  Serious: No
  Sender: FDA-Public Use
  Company Number: US-TARO-2014P1003269

PATIENT
  Age: 4 Year
  Sex: Male

DRUGS (2)
  1. CETIRIZINE HCL ORAL SOLUTION ALLERGY 1 MG/ML OTC [Suspect]
     Indication: NASOPHARYNGITIS
     Route: 048
     Dates: start: 20140411, end: 20140414
  2. FLINTSTONE^S GUMMIE COMPLETE [Concomitant]

REACTIONS (3)
  - Hyperventilation [Recovered/Resolved]
  - Respiratory rate increased [Recovered/Resolved]
  - Off label use [Unknown]
